FAERS Safety Report 20747797 (Version 2)
Quarter: 2023Q1

REPORT INFORMATION
  Report Type: Report from Study
  Country: JP (occurrence: JP)
  Receive Date: 20220425
  Receipt Date: 20230313
  Transmission Date: 20230418
  Serious: Yes (Hospitalization, Disabling, Other)
  Sender: FDA-Public Use
  Company Number: JP-TAKEDA-2022TJP042700

PATIENT
  Age: 33 Year
  Sex: Female

DRUGS (64)
  1. VELAGLUCERASE ALFA [Suspect]
     Active Substance: VELAGLUCERASE ALFA
     Indication: Gaucher^s disease type III
     Dosage: 3000 INTERNATIONAL UNIT, Q2WEEKS
     Route: 041
     Dates: start: 20150106, end: 20170912
  2. VELAGLUCERASE ALFA [Suspect]
     Active Substance: VELAGLUCERASE ALFA
     Dosage: 2400 INTERNATIONAL UNIT, Q2WEEKS
     Route: 041
     Dates: start: 20170926, end: 20200806
  3. VELAGLUCERASE ALFA [Suspect]
     Active Substance: VELAGLUCERASE ALFA
     Dosage: 2800 INTERNATIONAL UNIT, Q2WEEKS
     Route: 041
     Dates: start: 20200820
  4. FYCOMPA [Concomitant]
     Active Substance: PERAMPANEL
     Indication: Gaucher^s disease type III
     Dosage: 2 MILLIGRAM
     Route: 048
     Dates: start: 20160614, end: 20160704
  5. FYCOMPA [Concomitant]
     Active Substance: PERAMPANEL
     Dosage: 4 MILLIGRAM
     Route: 048
     Dates: start: 20160705, end: 20160718
  6. FYCOMPA [Concomitant]
     Active Substance: PERAMPANEL
     Dosage: 6 MILLIGRAM
     Route: 048
     Dates: start: 20160719
  7. FYCOMPA [Concomitant]
     Active Substance: PERAMPANEL
     Dosage: 12 MILLIGRAM
     Route: 048
  8. BENZALIN [Concomitant]
     Indication: Gaucher^s disease type III
     Dosage: 7.5 MILLIGRAM
     Route: 048
     Dates: end: 20150511
  9. BENZALIN [Concomitant]
     Dosage: 10 MILLIGRAM
     Route: 048
     Dates: start: 20150512, end: 20211110
  10. BENZALIN [Concomitant]
     Dosage: 8 MILLIGRAM
     Route: 048
     Dates: start: 20211111, end: 20220105
  11. LEVETIRACETAM [Concomitant]
     Active Substance: LEVETIRACETAM
     Indication: Gaucher^s disease type III
     Dosage: 3000 MILLIGRAM
     Route: 048
  12. LEVETIRACETAM [Concomitant]
     Active Substance: LEVETIRACETAM
     Dosage: 2500 MILLIGRAM
     Route: 048
  13. LEVETIRACETAM [Concomitant]
     Active Substance: LEVETIRACETAM
     Dosage: 3000 MILLIGRAM
     Route: 048
  14. LEVETIRACETAM [Concomitant]
     Active Substance: LEVETIRACETAM
     Dosage: 2500 MILLIGRAM
     Route: 048
     Dates: end: 20210604
  15. LEVETIRACETAM [Concomitant]
     Active Substance: LEVETIRACETAM
     Dosage: 3000 MILLIGRAM
     Route: 048
     Dates: start: 20210605
  16. CLONAZEPAM [Concomitant]
     Active Substance: CLONAZEPAM
     Indication: Gaucher^s disease type III
     Dosage: 2.5 MILLIGRAM
     Route: 048
     Dates: start: 20170901, end: 20211222
  17. CLONAZEPAM [Concomitant]
     Active Substance: CLONAZEPAM
     Dosage: 2.75 MILLIGRAM
     Route: 048
     Dates: start: 20211223
  18. MIYA-BM [Concomitant]
     Active Substance: CLOSTRIDIUM BUTYRICUM SPORES STRAIN M-55
     Indication: Gaucher^s disease type III
     Dosage: 6 GRAM
     Route: 048
     Dates: start: 20170729
  19. DANTRIUM [Concomitant]
     Active Substance: DANTROLENE SODIUM
     Indication: Gaucher^s disease type III
     Dosage: 150 MILLIGRAM
     Route: 048
     Dates: start: 20170807
  20. DANTRIUM [Concomitant]
     Active Substance: DANTROLENE SODIUM
     Dosage: 100 MILLIGRAM
     Route: 048
     Dates: start: 20190104, end: 20200108
  21. DANTRIUM [Concomitant]
     Active Substance: DANTROLENE SODIUM
     Dosage: 50 MILLIGRAM
     Route: 048
     Dates: start: 20200109, end: 20210820
  22. TOPIRAMATE [Concomitant]
     Active Substance: TOPIRAMATE
     Indication: Gaucher^s disease type III
     Dosage: 300 MILLIGRAM
     Route: 048
  23. TOPIRAMATE [Concomitant]
     Active Substance: TOPIRAMATE
     Dosage: 400 MILLIGRAM
     Route: 048
     Dates: end: 20181024
  24. TOPIRAMATE [Concomitant]
     Active Substance: TOPIRAMATE
     Dosage: 300 MILLIGRAM
     Route: 048
     Dates: start: 20181025, end: 20181121
  25. TOPIRAMATE [Concomitant]
     Active Substance: TOPIRAMATE
     Dosage: 350 MILLIGRAM
     Route: 048
     Dates: start: 20181122, end: 20210729
  26. TOPIRAMATE [Concomitant]
     Active Substance: TOPIRAMATE
     Dosage: 400 MILLIGRAM
     Route: 048
     Dates: start: 20210730
  27. HERBALS\MINERALS\VITAMINS [Concomitant]
     Active Substance: HERBALS\MINERALS\VITAMINS
     Indication: Gaucher^s disease type III
     Dosage: 45 MILLILITER
     Route: 048
     Dates: end: 20150706
  28. HERBALS\MINERALS\VITAMINS [Concomitant]
     Active Substance: HERBALS\MINERALS\VITAMINS
     Dosage: 50 MILLILITER
     Route: 048
     Dates: start: 20150707, end: 20160118
  29. HERBALS\MINERALS\VITAMINS [Concomitant]
     Active Substance: HERBALS\MINERALS\VITAMINS
     Dosage: 45 MILLILITER
     Route: 048
     Dates: start: 20160119, end: 20160228
  30. HERBALS\MINERALS\VITAMINS [Concomitant]
     Active Substance: HERBALS\MINERALS\VITAMINS
     Dosage: 48 MILLILITER
     Route: 048
     Dates: start: 20160301, end: 20161205
  31. HERBALS\MINERALS\VITAMINS [Concomitant]
     Active Substance: HERBALS\MINERALS\VITAMINS
     Dosage: 39 MILLILITER
     Route: 048
     Dates: start: 20161206, end: 20170829
  32. HERBALS\MINERALS\VITAMINS [Concomitant]
     Active Substance: HERBALS\MINERALS\VITAMINS
     Dosage: 56 MILLILITER
     Route: 048
     Dates: start: 20170830, end: 20200108
  33. HERBALS\MINERALS\VITAMINS [Concomitant]
     Active Substance: HERBALS\MINERALS\VITAMINS
     Dosage: 54 MILLILITER
     Route: 048
     Dates: start: 20200109, end: 20211124
  34. HERBALS\MINERALS\VITAMINS [Concomitant]
     Active Substance: HERBALS\MINERALS\VITAMINS
     Dosage: 55 MILLILITER
     Route: 048
     Dates: start: 20211125
  35. HERBAL NOS [Concomitant]
     Active Substance: HERBALS
     Indication: Gaucher^s disease type III
     Dosage: 7.5 GRAM
     Route: 048
     Dates: start: 20171022, end: 20211027
  36. Uralyt [Concomitant]
     Dosage: 2 GRAM
     Route: 048
     Dates: start: 20180927
  37. AMBROXOL HYDROCHLORIDE [Concomitant]
     Active Substance: AMBROXOL HYDROCHLORIDE
     Dosage: 45 MILLIGRAM
     Route: 048
  38. CERCINE [Concomitant]
     Active Substance: DIAZEPAM
     Dosage: 10 MILLIGRAM
     Route: 048
  39. AMINO ACIDS\CARBOHYDRATES\MINERALS\SOYBEAN OIL\VITAMINS [Concomitant]
     Active Substance: AMINO ACIDS\CARBOHYDRATES\MINERALS\SOYBEAN OIL\VITAMINS
     Indication: Gaucher^s disease type III
     Dosage: 160 GRAM
     Route: 050
     Dates: start: 20181108
  40. PHENOBARBITAL [Concomitant]
     Active Substance: PHENOBARBITAL
     Indication: Gaucher^s disease type III
     Dosage: 80 MILLIGRAM
     Route: 048
  41. PHENOBARBITAL [Concomitant]
     Active Substance: PHENOBARBITAL
     Dosage: 70 MILLIGRAM
     Route: 048
     Dates: start: 20161220
  42. PHENOBARBITAL [Concomitant]
     Active Substance: PHENOBARBITAL
     Dosage: 60 MILLIGRAM
     Route: 048
     Dates: start: 20170106, end: 20170213
  43. PHENOBARBITAL [Concomitant]
     Active Substance: PHENOBARBITAL
     Dosage: 50 MILLIGRAM
     Route: 048
     Dates: start: 20170214, end: 20170313
  44. PHENOBARBITAL [Concomitant]
     Active Substance: PHENOBARBITAL
     Dosage: 60 MILLIGRAM
     Route: 048
     Dates: start: 20170314, end: 20170605
  45. PHENOBARBITAL [Concomitant]
     Active Substance: PHENOBARBITAL
     Dosage: 80 MILLIGRAM
     Route: 048
     Dates: start: 20170606, end: 20170731
  46. PHENOBARBITAL [Concomitant]
     Active Substance: PHENOBARBITAL
     Dosage: 120 MILLIGRAM
     Route: 048
     Dates: start: 20170801, end: 20170804
  47. PHENOBARBITAL [Concomitant]
     Active Substance: PHENOBARBITAL
     Dosage: 70 MILLIGRAM
     Route: 048
     Dates: start: 20210609, end: 20211018
  48. PHENOBARBITAL [Concomitant]
     Active Substance: PHENOBARBITAL
     Dosage: 180 MILLIGRAM
     Route: 048
     Dates: start: 20211019
  49. Choreito [Concomitant]
     Dosage: 5 GRAM
     Route: 048
     Dates: start: 20210121
  50. HERBALS [Concomitant]
     Active Substance: HERBALS
     Dosage: 15 GRAM
     Route: 048
     Dates: start: 20210713
  51. ENEVO [Concomitant]
     Indication: Gaucher^s disease type III
     Dosage: 1250 MILLILITER
     Route: 050
     Dates: start: 20170901, end: 20181109
  52. ENEVO [Concomitant]
     Dosage: 250 MILLILITER
     Route: 050
     Dates: start: 20210126
  53. RIVOTRIL [Concomitant]
     Active Substance: CLONAZEPAM
     Indication: Gaucher^s disease type III
     Dosage: 2 MILLIGRAM
     Route: 048
  54. DEPAKENE [Concomitant]
     Active Substance: VALPROIC ACID
     Indication: Gaucher^s disease type III
     Dosage: 600 MILLIGRAM
     Route: 048
     Dates: end: 20170718
  55. BIO-THREE [Concomitant]
     Active Substance: HERBALS
     Dosage: 6 DOSAGE FORM
     Route: 048
  56. MAXALT [Concomitant]
     Active Substance: RIZATRIPTAN BENZOATE
     Dosage: 10 MILLIGRAM
     Route: 048
  57. CARBIDOPA\LEVODOPA [Concomitant]
     Active Substance: CARBIDOPA\LEVODOPA
     Indication: Gaucher^s disease type III
     Dosage: 100 MILLIGRAM
     Route: 048
     Dates: start: 20151013, end: 20151019
  58. CARBIDOPA\LEVODOPA [Concomitant]
     Active Substance: CARBIDOPA\LEVODOPA
     Dosage: 200 MILLIGRAM
     Route: 048
     Dates: start: 20151020, end: 20151123
  59. CARBIDOPA\LEVODOPA [Concomitant]
     Active Substance: CARBIDOPA\LEVODOPA
     Dosage: 100 MILLIGRAM
     Route: 048
     Dates: start: 20151124
  60. FAMOTIDINE [Concomitant]
     Active Substance: FAMOTIDINE
     Indication: Gaucher^s disease type III
     Dosage: 40 MILLIGRAM
     Route: 048
     Dates: start: 20170825, end: 20190327
  61. LICORICE ROOT EXTRACT\RHUBARB [Concomitant]
     Active Substance: LICORICE ROOT EXTRACT\RHUBARB
     Indication: Gaucher^s disease type III
     Dosage: 2.5 GRAM
     Route: 048
     Dates: start: 20171023, end: 20180426
  62. TIZANIDINE [Concomitant]
     Active Substance: TIZANIDINE
     Indication: Gaucher^s disease type III
     Dosage: 14 MILLIGRAM
     Route: 048
     Dates: start: 20170810, end: 20181122
  63. MUCOSAL [Concomitant]
     Dosage: 45 MILLIGRAM
     Route: 048
     Dates: start: 20180209
  64. ABILIFY [Concomitant]
     Active Substance: ARIPIPRAZOLE
     Indication: Gaucher^s disease type III
     Dosage: 1 MILLIGRAM
     Route: 048
     Dates: start: 20191205, end: 20200624

REACTIONS (1)
  - Myoclonic epilepsy [Unknown]

NARRATIVE: CASE EVENT DATE: 20220421
